FAERS Safety Report 25203330 (Version 1)
Quarter: 2025Q2

REPORT INFORMATION
  Report Type: Spontaneous
  Country: FR (occurrence: FR)
  Receive Date: 20250416
  Receipt Date: 20250416
  Transmission Date: 20250716
  Serious: Yes (Other)
  Sender: TEVA
  Company Number: None

PATIENT
  Age: 28 Year
  Sex: Male

DRUGS (1)
  1. ALPRAZOLAM [Suspect]
     Active Substance: ALPRAZOLAM
     Indication: Product used for unknown indication
     Dosage: APPROXIMATELY 4.5 TABLETS/DAY
     Route: 048
     Dates: start: 2025

REACTIONS (1)
  - Drug use disorder [Unknown]

NARRATIVE: CASE EVENT DATE: 20250101
